FAERS Safety Report 8374459-1 (Version None)
Quarter: 2012Q2

REPORT INFORMATION
  Report Type: 
  Country: None (occurrence: None)
  Receive Date: 20120521
  Receipt Date: 20120507
  Transmission Date: 20120825
  Serious: No
  Sender: FDA-Public Use
  Company Number: DK-JNJFOC-20120212985

PATIENT
  Sex: Male
  Weight: 90 kg

DRUGS (7)
  1. CITALOPRAM HYDROBROMIDE [Concomitant]
     Route: 065
  2. PREDNISOLONE [Concomitant]
     Route: 065
  3. ZYTIGA [Suspect]
     Indication: PROSTATE CANCER
     Route: 048
     Dates: start: 20111005
  4. POTASSIUM CHLORIDE [Concomitant]
     Route: 065
  5. FUROSEMIDE [Interacting]
     Indication: DIURETIC THERAPY
     Dosage: CUMULATIVE DOSE 920 MG
     Route: 065
     Dates: start: 20111003, end: 20120202
  6. METFORMIN HYDROCHLORIDE [Concomitant]
     Route: 065
  7. ASPIRIN [Concomitant]
     Indication: THROMBOSIS PROPHYLAXIS
     Route: 065

REACTIONS (2)
  - DRUG INTERACTION [None]
  - MUSCLE SPASMS [None]
